FAERS Safety Report 4357298-8 (Version None)
Quarter: 2004Q2

REPORT INFORMATION
  Report Type: 
  Country: None (occurrence: None)
  Receive Date: 20040512
  Receipt Date: 20040512
  Transmission Date: 20050107
  Serious: Yes (Death)
  Sender: FDA-Public Use
  Company Number: None

PATIENT
  Age: 29 Year
  Sex: Male

DRUGS (3)
  1. MEPERIDINE HCL [Suspect]
     Indication: ABSCESS
     Dosage: SINGLE IV DOSE
     Route: 042
  2. PROMETHAZINE [Suspect]
     Dosage: FOR WOUND DRESSING
  3. LEVOFLOXACIN [Concomitant]

REACTIONS (7)
  - ABDOMINAL DISCOMFORT [None]
  - APNOEA [None]
  - LOSS OF CONSCIOUSNESS [None]
  - PALLOR [None]
  - PULSE ABSENT [None]
  - THERAPY NON-RESPONDER [None]
  - VENTRICULAR FIBRILLATION [None]
